FAERS Safety Report 8772944 (Version 1)
Quarter: 2012Q4

REPORT INFORMATION
  Report Type: Report from Study
  Country: US (occurrence: US)
  Receive Date: 20120907
  Receipt Date: 20120907
  Transmission Date: 20130627
  Serious: Yes (Hospitalization, Other)
  Sender: FDA-Public Use
  Company Number: US-ABBOTT-12P-163-0974062-00

PATIENT
  Age: 66 Year
  Sex: Female

DRUGS (7)
  1. HUMIRA 40 MG/0.8 ML PEN [Suspect]
     Indication: CROHN^S DISEASE
     Dates: start: 20120629, end: 20120728
  2. FERROUS SULFATE [Concomitant]
     Indication: ANAEMIA
     Route: 048
  3. FERROUS SULFATE [Concomitant]
     Indication: ANAEMIA
  4. COLESTIPOL HYDROCHLORIDE [Concomitant]
     Indication: CROHN^S DISEASE
     Dosage: 2 in AM, 2 in PM
     Route: 048
  5. ONE A DAY WOMEN^S [Concomitant]
     Indication: VITAMIN SUPPLEMENTATION
     Dosage: Daily
     Route: 048
  6. VITAMIN C [Concomitant]
     Indication: VITAMIN SUPPLEMENTATION
     Route: 048
  7. OMEGA 3 FISH OIL [Concomitant]
     Indication: SUPPLEMENTATION THERAPY
     Dosage: 3 caps AM and 2 caps PM

REACTIONS (4)
  - Dyspnoea [Recovering/Resolving]
  - Chest pain [Unknown]
  - Anaemia [Unknown]
  - Drug dose omission [Unknown]
